FAERS Safety Report 5417326-5 (Version None)
Quarter: 2007Q3

REPORT INFORMATION
  Report Type: 
  Country: None (occurrence: None)
  Receive Date: 20070718
  Receipt Date: 20060828
  Transmission Date: 20080115
  Serious: Yes (Hospitalization, Other)
  Sender: FDA-Public Use
  Company Number: 2005141183

PATIENT
  Sex: Female

DRUGS (2)
  1. CELEBREX [Suspect]
     Indication: FOOT FRACTURE
     Dosage: 3-4/DAY; ORAL
     Route: 048
     Dates: start: 19990101
  2. VIOXX [Suspect]
     Indication: MUSCULOSKELETAL DISORDER
     Dosage: 25 MG, (25 MG, HS); ORAL
     Route: 048
     Dates: start: 19990101

REACTIONS (3)
  - COLITIS ISCHAEMIC [None]
  - DEPRESSION [None]
  - MYOCARDIAL INFARCTION [None]
